FAERS Safety Report 7403565-0 (Version None)
Quarter: 2011Q2

REPORT INFORMATION
  Report Type: 
  Country: None (occurrence: None)
  Receive Date: 20110401
  Receipt Date: 20110322
  Transmission Date: 20111010
  Serious: Yes (Hospitalization)
  Sender: FDA-Public Use
  Company Number: 871294

PATIENT
  Age: 72 Year
  Sex: Female
  Weight: 71 kg

DRUGS (1)
  1. OXALIPLATIN [Suspect]
     Indication: COLON CANCER METASTATIC
     Dosage: 143 MG MILLIGRAM(S); INTRAVENOUS
     Route: 042
     Dates: start: 20110310, end: 20110310

REACTIONS (4)
  - VITREOUS FLOATERS [None]
  - RASH ERYTHEMATOUS [None]
  - PRURITUS [None]
  - COLOUR BLINDNESS ACQUIRED [None]
